FAERS Safety Report 4896368-2 (Version None)
Quarter: 2006Q1

REPORT INFORMATION
  Report Type: 
  Country: None (occurrence: None)
  Receive Date: 20060126
  Receipt Date: 20060112
  Transmission Date: 20060701
  Serious: Yes (Other)
  Sender: FDA-Public Use
  Company Number: S06-GER-00070-01

PATIENT
  Age: 76 Year
  Sex: Male

DRUGS (4)
  1. CIPRALEX (ESCITALOPRAM) [Suspect]
     Dosage: 20 MG DAILY PO
     Route: 048
  2. CIPRALEX (ESCITALOPRAM) [Suspect]
     Dosage: 5 MG DAILY PO
     Route: 048
  3. MIRTAZAPINE [Concomitant]
  4. LORAZEPAM [Concomitant]

REACTIONS (1)
  - PSYCHOMOTOR SEIZURES [None]
